FAERS Safety Report 5322931-0 (Version None)
Quarter: 2007Q1

REPORT INFORMATION
  Report Type: 
  Country: None (occurrence: None)
  Receive Date: 20070220
  Receipt Date: 20061127
  Transmission Date: 20070707
  Serious: No
  Sender: FDA-Public Use
  Company Number: TPA2006A02120

PATIENT
  Age: 82 Year
  Sex: Male
  Weight: 80.7403 kg

DRUGS (2)
  1. ROZEREM [Suspect]
     Indication: RAPID EYE MOVEMENTS SLEEP ABNORMAL
     Dosage: 8 MG, QHS, PER ORAL
     Route: 048
     Dates: start: 20061110, end: 20061111
  2. KLONOPIN [Concomitant]

REACTIONS (1)
  - INITIAL INSOMNIA [None]
